FAERS Safety Report 10154424 (Version 1)
Quarter: 2014Q2

REPORT INFORMATION
  Report Type: Spontaneous
  Country: US (occurrence: None)
  Receive Date: 20140505
  Receipt Date: 20140505
  Transmission Date: 20141212
  Serious: Yes (Life-Threatening)
  Sender: FDA-Public Use
  Company Number: None

PATIENT
  Age: 43 Year
  Sex: Female
  Weight: 123.38 kg

DRUGS (1)
  1. HYDROCORTISONE [Suspect]
     Indication: PRIMARY ADRENAL INSUFFICIENCY
     Route: 048
     Dates: start: 20130902, end: 20140115

REACTIONS (3)
  - Product substitution issue [None]
  - Primary adrenal insufficiency [None]
  - Condition aggravated [None]
